FAERS Safety Report 25745107 (Version 1)
Quarter: 2025Q3

REPORT INFORMATION
  Report Type: Spontaneous
  Country: EU (occurrence: EU)
  Receive Date: 20250901
  Receipt Date: 20250901
  Transmission Date: 20251021
  Serious: Yes (Other)
  Sender: AUROBINDO
  Company Number: EU-JAZZ PHARMACEUTICALS-2025-FR-017251

PATIENT
  Age: 69 Year
  Sex: Male
  Weight: 65 kg

DRUGS (5)
  1. PANTOPRAZOLE [Suspect]
     Active Substance: PANTOPRAZOLE
     Indication: Product used for unknown indication
     Dosage: UNK UNK, ONCE A DAY
     Route: 048
  2. ZANIDATAMAB [Suspect]
     Active Substance: ZANIDATAMAB
     Indication: HER2 positive biliary tract cancer
     Dosage: 20 MILLIGRAM/KILOGRAM, Q2W
     Route: 042
     Dates: start: 20250509, end: 20250620
  3. ZANIDATAMAB [Suspect]
     Active Substance: ZANIDATAMAB
     Indication: Bile duct cancer stage IV
  4. ELIQUIS [Suspect]
     Active Substance: APIXABAN
     Indication: Product used for unknown indication
     Route: 048
  5. ERYTHROPOIETIN [Suspect]
     Active Substance: ERYTHROPOIETIN
     Indication: Product used for unknown indication
     Route: 058

REACTIONS (1)
  - Bile duct cancer stage IV [Unknown]

NARRATIVE: CASE EVENT DATE: 20250509
